FAERS Safety Report 4678370-9 (Version None)
Quarter: 2005Q2

REPORT INFORMATION
  Report Type: 
  Country: None (occurrence: None)
  Receive Date: 20050601
  Receipt Date: 20050520
  Transmission Date: 20051028
  Serious: Yes (Other)
  Sender: FDA-Public Use
  Company Number: PHNR2005AU00898

PATIENT
  Sex: Female

DRUGS (3)
  1. ZOMETA [Suspect]
     Indication: METASTASES TO BONE
     Dates: start: 20050215
  2. AREDIA [Suspect]
     Dates: start: 20030501
  3. ARIMIDEX [Concomitant]

REACTIONS (2)
  - FISTULA [None]
  - TOOTH EXTRACTION [None]
